FAERS Safety Report 7618719-8 (Version None)
Quarter: 2011Q3

REPORT INFORMATION
  Report Type: 
  Country: None (occurrence: None)
  Receive Date: 20110718
  Receipt Date: 20110713
  Transmission Date: 20111222
  Serious: Yes (Hospitalization)
  Sender: FDA-Public Use
  Company Number: CN-SANOFI-AVENTIS-2011SA024594

PATIENT
  Age: 69 Year
  Sex: Female
  Weight: 80 kg

DRUGS (5)
  1. LANTUS [Suspect]
     Route: 058
     Dates: start: 20070101, end: 20110325
  2. ISOPTIN [Concomitant]
     Indication: HYPERTENSION
     Route: 048
  3. ASPIRIN [Concomitant]
     Indication: ARTERIOSCLEROSIS
     Route: 048
  4. SIMVASTATIN [Concomitant]
     Indication: ARTERIOSCLEROSIS
     Route: 048
  5. LANTUS [Suspect]
     Indication: DIABETES MELLITUS
     Route: 058
     Dates: start: 20110326

REACTIONS (2)
  - CEREBRAL INFARCTION [None]
  - DIABETES MELLITUS INADEQUATE CONTROL [None]
